FAERS Safety Report 8348278 (Version 5)
Quarter: 2014Q4

REPORT INFORMATION
  Report Type: Spontaneous
  Country: FR (occurrence: FR)
  Receive Date: 20120123
  Receipt Date: 20141106
  Transmission Date: 20150529
  Serious: Yes (Death, Life-Threatening, Hospitalization)
  Sender: FDA-Public Use
  Company Number: FR-ACTELION-A-CH2012-59468

PATIENT
  Age: 59 Year
  Sex: Female
  Weight: 73 kg

DRUGS (6)
  1. TRACLEER [Suspect]
     Active Substance: BOSENTAN\BOSENTAN MONOHYDRATE
     Dosage: 62.5 MG, BID
     Route: 048
     Dates: start: 20110510, end: 20110605
  2. ATARAX [Concomitant]
     Active Substance: HYDROXYZINE\HYDROXYZINE HYDROCHLORIDE
  3. TRACLEER [Suspect]
     Active Substance: BOSENTAN\BOSENTAN MONOHYDRATE
     Indication: SCLERODERMA RENAL CRISIS
     Dosage: 125 MG, BID
     Route: 048
     Dates: start: 20110606, end: 20110822
  4. RIVOTRIL [Concomitant]
     Active Substance: CLONAZEPAM
  5. LASILIX [Concomitant]
     Active Substance: FUROSEMIDE
  6. TRIATEC [Concomitant]
     Active Substance: RAMIPRIL

REACTIONS (10)
  - Bacterial sepsis [Recovered/Resolved]
  - Enterococcal infection [Recovered/Resolved]
  - Pneumonia aspiration [Fatal]
  - Scleroderma renal crisis [Fatal]
  - Dysphagia [Fatal]
  - Klebsiella sepsis [Fatal]
  - Metastases to lung [Fatal]
  - Myopathy [Fatal]
  - Colorectal cancer metastatic [Fatal]
  - Disease progression [Fatal]

NARRATIVE: CASE EVENT DATE: 20110610
